FAERS Safety Report 4874954-3 (Version None)
Quarter: 2006Q1

REPORT INFORMATION
  Report Type: 
  Country: None (occurrence: None)
  Receive Date: 20060105
  Receipt Date: 20051221
  Transmission Date: 20060701
  Serious: Yes (Hospitalization)
  Sender: FDA-Public Use
  Company Number: US-2005-016968

PATIENT
  Age: 55 Year
  Sex: Female
  Weight: 88.4 kg

DRUGS (23)
  1. BETAFERON (BETAFERON BETA - 1 B) INJECTION, 250?G [Suspect]
     Indication: RELAPSING-REMITTING MULTIPLE SCLEROSIS
     Dosage: 8 MIU EVERY 2D, SUBCUTANEOUS
     Route: 058
     Dates: start: 20050202, end: 20051101
  2. AVONEX [Concomitant]
  3. LEXAPRO [Concomitant]
  4. AMLODIPINE [Concomitant]
  5. GABAPENTIN [Concomitant]
  6. ATORVASTATIN CALCIUM [Concomitant]
  7. HYDROCHLOROTHIAZIDE [Concomitant]
  8. ALPRAZOLAM [Concomitant]
  9. HYDROCHLOROTHIAZIDE [Concomitant]
  10. ALPRAZOLAM [Concomitant]
  11. HYDROCODONE BITARTRATE [Concomitant]
  12. BURPOPION (BUPROPION) [Concomitant]
  13. FAMOTIDINE [Concomitant]
  14. OXYCONTIN [Concomitant]
  15. HYDROCORTISONE CREAM [Concomitant]
  16. BACLOFEN [Concomitant]
  17. ELAVIL [Concomitant]
  18. COLACE (DOCUSATE SODIUM) [Concomitant]
  19. PROTONIX [Concomitant]
  20. SOLU-MEDROL [Concomitant]
  21. PERCOCET [Concomitant]
  22. PREDNISONE [Concomitant]
  23. METHYLPREDNISOLONE [Concomitant]

REACTIONS (25)
  - AFFECT LABILITY [None]
  - AGGRESSION [None]
  - AGITATION [None]
  - ASPIRATION [None]
  - ASTHENIA [None]
  - BIPOLAR II DISORDER [None]
  - CEREBRAL ATROPHY [None]
  - CONDITION AGGRAVATED [None]
  - DELUSION [None]
  - GRANDIOSITY [None]
  - HYPOMANIA [None]
  - INSOMNIA [None]
  - JUDGEMENT IMPAIRED [None]
  - MANIA [None]
  - MEMORY IMPAIRMENT [None]
  - MULTIPLE SCLEROSIS RELAPSE [None]
  - NERVOUSNESS [None]
  - NOSOCOMIAL INFECTION [None]
  - PNEUMONIA ASPIRATION [None]
  - PRESSURE OF SPEECH [None]
  - PSYCHOTIC DISORDER [None]
  - SURGERY [None]
  - THINKING ABNORMAL [None]
  - URINARY INCONTINENCE [None]
  - URINARY TRACT INFECTION [None]
